FAERS Safety Report 16551220 (Version 1)
Quarter: 2019Q3

REPORT INFORMATION
  Report Type: Spontaneous
  Country: US (occurrence: US)
  Receive Date: 20190709
  Receipt Date: 20190709
  Transmission Date: 20191004
  Serious: Yes (Life-Threatening, Hospitalization, Other)
  Sender: FDA-Public Use
  Company Number: None

PATIENT
  Age: 54 Year
  Sex: Female
  Weight: 51.75 kg

DRUGS (11)
  1. ZOPIDIN [Concomitant]
  2. FLAXSEED [Concomitant]
     Active Substance: FLAX SEED
  3. ATIVAN [Suspect]
     Active Substance: LORAZEPAM
     Indication: INSOMNIA
     Route: 048
  4. LAMICTAL [Concomitant]
     Active Substance: LAMOTRIGINE
  5. AMITRIPTYLINE [Concomitant]
     Active Substance: AMITRIPTYLINE
  6. ENALAPRIL [Concomitant]
     Active Substance: ENALAPRIL
  7. VITAMIN D [Concomitant]
     Active Substance: VITAMIN D NOS
  8. AMLODIPINE [Concomitant]
     Active Substance: AMLODIPINE BESYLATE
  9. GYLENIA [Concomitant]
  10. ATIVAN [Concomitant]
     Active Substance: LORAZEPAM
  11. MULTI VITAMIN [Concomitant]
     Active Substance: VITAMINS

REACTIONS (13)
  - Pharmacophobia [None]
  - Seizure [None]
  - Psychotic disorder [None]
  - Drug dependence [None]
  - Therapy cessation [None]
  - Phobia [None]
  - Pain [None]
  - Drug withdrawal syndrome [None]
  - Inappropriate schedule of product administration [None]
  - Product dose omission [None]
  - Suicidal ideation [None]
  - Neuralgia [None]
  - Anxiety [None]
